FAERS Safety Report 13554343 (Version 1)
Quarter: 2017Q2

REPORT INFORMATION
  Report Type: Spontaneous
  Country: US (occurrence: US)
  Receive Date: 20170517
  Receipt Date: 20170517
  Transmission Date: 20170830
  Serious: No
  Sender: FDA-Public Use
  Company Number: None

PATIENT
  Sex: Female

DRUGS (1)
  1. LEVAQUIN [Suspect]
     Active Substance: LEVOFLOXACIN
     Indication: MALAISE

REACTIONS (4)
  - Product substitution issue [None]
  - Dysgraphia [None]
  - Adverse drug reaction [None]
  - Musculoskeletal disorder [None]
